APPROVED DRUG PRODUCT: METHOCARBAMOL
Active Ingredient: METHOCARBAMOL
Strength: 750MG
Dosage Form/Route: TABLET;ORAL
Application: A208507 | Product #002 | TE Code: AA
Applicant: REGCON HOLDINGS LLC
Approved: Jul 21, 2017 | RLD: No | RS: No | Type: RX